FAERS Safety Report 6283292-6 (Version None)
Quarter: 2009Q3

REPORT INFORMATION
  Report Type: 
  Country: None (occurrence: None)
  Receive Date: 20090724
  Receipt Date: 20090720
  Transmission Date: 20100115
  Serious: Yes (Other)
  Sender: FDA-Public Use
  Company Number: IN-PFIZER INC-2009219986

PATIENT
  Age: 38 Year

DRUGS (1)
  1. SILDENAFIL CITRATE [Suspect]
     Indication: ERECTILE DYSFUNCTION
     Dosage: FREQUENCY: UNKN, UNKN;
     Route: 048

REACTIONS (2)
  - COUGH [None]
  - HAEMOPTYSIS [None]
